FAERS Safety Report 4584187-6 (Version None)
Quarter: 2005Q1

REPORT INFORMATION
  Report Type: 
  Country: None (occurrence: None)
  Receive Date: 20050125
  Receipt Date: 20041119
  Transmission Date: 20050727
  Serious: No
  Sender: FDA-Public Use
  Company Number: USA041082601

PATIENT
  Age: 77 Year
  Sex: Female

DRUGS (1)
  1. FORTEO [Suspect]
     Indication: OSTEOPOROSIS
     Dates: start: 20041007

REACTIONS (4)
  - HYPERSENSITIVITY [None]
  - MUSCLE SPASMS [None]
  - PRURITUS [None]
  - SKIN BURNING SENSATION [None]
